FAERS Safety Report 11096399 (Version 2)
Quarter: 2015Q3

REPORT INFORMATION
  Report Type: Spontaneous
  Country: JP (occurrence: JP)
  Receive Date: 20150507
  Receipt Date: 20150925
  Transmission Date: 20151125
  Serious: Yes (Other)
  Sender: FDA-Public Use
  Company Number: JP-JNJFOC-20150424665

PATIENT
  Age: 68 Year
  Sex: Male
  Weight: 78 kg

DRUGS (13)
  1. CANAGLU [Suspect]
     Active Substance: CANAGLIFLOZIN
     Indication: DIABETES MELLITUS
     Route: 048
     Dates: start: 20150319, end: 20150321
  2. SUGLAT [Concomitant]
     Active Substance: IPRAGLIFLOZIN L-PROLINE
     Indication: PRODUCT USED FOR UNKNOWN INDICATION
     Route: 065
  3. ZETIA [Concomitant]
     Active Substance: EZETIMIBE
     Indication: DYSLIPIDAEMIA
     Route: 048
     Dates: start: 20140916, end: 20150321
  4. PLETAAL [Concomitant]
     Active Substance: CILOSTAZOL
     Indication: THROMBOSIS
     Route: 048
     Dates: start: 20140916, end: 20150321
  5. VESICARE [Concomitant]
     Active Substance: SOLIFENACIN SUCCINATE
     Indication: HYPERTONIC BLADDER
     Route: 048
     Dates: start: 20140916, end: 20150321
  6. VOLTAREN [Concomitant]
     Active Substance: DICLOFENAC SODIUM
     Indication: PRODUCT USED FOR UNKNOWN INDICATION
     Route: 054
     Dates: end: 20150321
  7. REPAGLINIDE. [Suspect]
     Active Substance: REPAGLINIDE
     Indication: DIABETES MELLITUS
     Dosage: 0.75-1.5MG
     Route: 048
     Dates: start: 20150212, end: 20150319
  8. EQUA (VILDAGLIPTIN) [Concomitant]
     Active Substance: VILDAGLIPTIN
     Indication: DIABETES MELLITUS
     Route: 048
     Dates: start: 20120319, end: 20150321
  9. PURSENNID [Concomitant]
     Active Substance: SENNOSIDES A AND B
     Indication: CONSTIPATION
     Route: 048
     Dates: start: 20110914, end: 20150321
  10. CANAGLU [Suspect]
     Active Substance: CANAGLIFLOZIN
     Indication: DIABETES MELLITUS
     Route: 048
     Dates: start: 20141021, end: 20150212
  11. ADALAT [Concomitant]
     Active Substance: NIFEDIPINE
     Indication: PRODUCT USED FOR UNKNOWN INDICATION
     Dosage: 1 CAPSULE
     Route: 048
     Dates: end: 20150321
  12. AZILVA [Concomitant]
     Active Substance: AZILSARTAN KAMEDOXOMIL
     Indication: HYPERTENSION
     Route: 048
     Dates: start: 20140916, end: 20150321
  13. PARIET [Concomitant]
     Active Substance: RABEPRAZOLE SODIUM
     Indication: GASTRITIS
     Route: 048
     Dates: start: 20110914, end: 20150321

REACTIONS (1)
  - Carotid artery occlusion [Not Recovered/Not Resolved]

NARRATIVE: CASE EVENT DATE: 20150321
